FAERS Safety Report 6333307-1 (Version None)
Quarter: 2009Q3

REPORT INFORMATION
  Report Type: 
  Country: None (occurrence: None)
  Receive Date: 20090826
  Receipt Date: 20081028
  Transmission Date: 20100115
  Serious: Yes (Hospitalization)
  Sender: FDA-Public Use
  Company Number: 2008BH011559

PATIENT
  Age: 65 Year
  Sex: Male
  Weight: 86 kg

DRUGS (4)
  1. ATIVAN [Suspect]
     Indication: SEDATIVE THERAPY
     Dates: start: 20080903
  2. TEMODAR [Concomitant]
  3. HALDOL [Concomitant]
  4. BIBW 2992 [Concomitant]

REACTIONS (1)
  - DELIRIUM [None]
